FAERS Safety Report 6387411-2 (Version None)
Quarter: 2009Q3

REPORT INFORMATION
  Report Type: 
  Country: None (occurrence: None)
  Receive Date: 20090930
  Receipt Date: 20090917
  Transmission Date: 20100115
  Serious: Yes (Other)
  Sender: FDA-Public Use
  Company Number: 231404K09USA

PATIENT
  Age: 62 Year
  Sex: Female

DRUGS (5)
  1. REBIF [Suspect]
     Indication: MULTIPLE SCLEROSIS
     Dosage: 44 MCG, 3 IN 1 WEEKS, SUBCUTANEOUS
     Route: 058
     Dates: start: 20060314
  2. LEXAPRO [Concomitant]
  3. MULTI-VITAMINS [Concomitant]
  4. TYLENOL [Concomitant]
  5. FORTEO [Concomitant]

REACTIONS (1)
  - BASEDOW'S DISEASE [None]
